FAERS Safety Report 6779616 (Version 10)
Quarter: 2013Q2

REPORT INFORMATION
  Report Type: Spontaneous
  Country: US (occurrence: US)
  Receive Date: 20081006
  Receipt Date: 20130417
  Transmission Date: 20140414
  Serious: Yes (Hospitalization, Other)
  Sender: FDA-Public Use
  Company Number: US-ROCHE-552236

PATIENT
  Age: 28 Year
  Sex: Male
  Weight: 77.1 kg

DRUGS (3)
  1. ACCUTANE [Suspect]
     Indication: ACNE
     Route: 065
     Dates: start: 1985, end: 1986
  2. ACCUTANE [Suspect]
     Route: 065
     Dates: start: 19931025, end: 19940224
  3. ACCUTANE [Suspect]
     Route: 065
     Dates: start: 19960920, end: 19961220

REACTIONS (11)
  - Colitis ulcerative [Unknown]
  - Inflammatory bowel disease [Unknown]
  - Depression [Not Recovered/Not Resolved]
  - Small intestinal obstruction [Unknown]
  - Crohn^s disease [Unknown]
  - Emotional distress [Unknown]
  - Suicidal ideation [Unknown]
  - Oral herpes [Unknown]
  - Nephrolithiasis [Unknown]
  - Dry skin [Unknown]
  - Lip dry [Unknown]
